FAERS Safety Report 25759242 (Version 1)
Quarter: 2025Q3

REPORT INFORMATION
  Report Type: Report from Study
  Country: US (occurrence: US)
  Receive Date: 20250904
  Receipt Date: 20250904
  Transmission Date: 20251020
  Serious: No
  Sender: SUNOVION
  Company Number: US-SUMITOMO PHARMA SWITZERLAND GMBH-2025SPA002324

PATIENT
  Age: 76 Year
  Sex: Male

DRUGS (13)
  1. ORGOVYX [Suspect]
     Active Substance: RELUGOLIX
     Indication: Prostate cancer
     Dosage: 120 MG, QD
     Route: 048
     Dates: start: 202412
  2. ABIRATERONE ACETATE [Concomitant]
     Active Substance: ABIRATERONE ACETATE
  3. LEXAPRO [Concomitant]
     Active Substance: ESCITALOPRAM OXALATE
  4. ATENOLOL AND CHLORTHALIDONE [Concomitant]
     Active Substance: ATENOLOL\CHLORTHALIDONE
  5. AMITRIPTYLINE [Concomitant]
     Active Substance: AMITRIPTYLINE
  6. PREDNISONE [Concomitant]
     Active Substance: PREDNISONE
  7. CALCITRIOL [Concomitant]
     Active Substance: CALCITRIOL
  8. NEXIUM [Concomitant]
     Active Substance: ESOMEPRAZOLE MAGNESIUM
  9. TIZANIDINE [Concomitant]
     Active Substance: TIZANIDINE
  10. IBUPROFEN [Concomitant]
     Active Substance: IBUPROFEN
     Route: 048
  11. TYLENOL [Concomitant]
     Active Substance: ACETAMINOPHEN
     Route: 048
  12. VITAMIN D [Concomitant]
     Active Substance: VITAMIN D NOS
     Route: 048
  13. VITAMIN K [Concomitant]
     Active Substance: PHYTONADIONE

REACTIONS (3)
  - Fatigue [Unknown]
  - Incorrect dose administered [Recovered/Resolved]
  - Therapy interrupted [Recovered/Resolved]
